FAERS Safety Report 9466791 (Version 2)
Quarter: 2013Q3

REPORT INFORMATION
  Report Type: Spontaneous
  Country: US (occurrence: US)
  Receive Date: 20130820
  Receipt Date: 20130923
  Transmission Date: 20140515
  Serious: Yes (Other)
  Sender: FDA-Public Use
  Company Number: US-PFIZER INC-2013238110

PATIENT
  Age: 65 Year
  Sex: Female

DRUGS (3)
  1. PREMARIN [Suspect]
     Dosage: UNK
     Dates: start: 19920701, end: 19960318
  2. PROVERA [Suspect]
     Dosage: UNK
     Dates: start: 19920701, end: 19960318
  3. PREMPRO [Suspect]
     Dosage: 2.5 MG, UNK
     Dates: start: 19960319, end: 20030625

REACTIONS (1)
  - Breast cancer female [Unknown]
